FAERS Safety Report 9142049 (Version 2)
Quarter: 2013Q2

REPORT INFORMATION
  Report Type: Spontaneous
  Country: US (occurrence: US)
  Receive Date: 20130305
  Receipt Date: 20130404
  Transmission Date: 20140414
  Serious: No
  Sender: FDA-Public Use
  Company Number: US-AMGEN-USASP2013012924

PATIENT
  Age: 57 Year
  Sex: Male

DRUGS (3)
  1. ENBREL [Suspect]
     Indication: RHEUMATOID ARTHRITIS
     Dosage: 50 MG, QWK
     Dates: start: 20130204
  2. ENBREL [Suspect]
  3. METHOTREXATE [Concomitant]
     Dosage: 2.5 MG, QWK, 8 TABLETS
     Route: 048
     Dates: start: 2011

REACTIONS (1)
  - Rheumatoid arthritis [Not Recovered/Not Resolved]
